FAERS Safety Report 18392198 (Version 1)
Quarter: 2020Q4

REPORT INFORMATION
  Report Type: Spontaneous
  Country: US (occurrence: US)
  Receive Date: 20201016
  Receipt Date: 20201016
  Transmission Date: 20210114
  Serious: No
  Sender: FDA-Public Use
  Company Number: US-MYLANLABS-2020M1085654

PATIENT
  Sex: Female
  Weight: 68 kg

DRUGS (2)
  1. ESTRADIOL TRANSDERMAL SYSTEM [Suspect]
     Active Substance: ESTRADIOL
     Indication: MENOPAUSAL SYMPTOMS
     Dosage: 0.05 MILLIGRAM, QD
     Route: 062
  2. ESTRADIOL TRANSDERMAL SYSTEM [Suspect]
     Active Substance: ESTRADIOL
     Indication: METRORRHAGIA
     Dosage: 0.1 MILLIGRAM, QD
     Route: 062

REACTIONS (5)
  - Application site pain [Recovered/Resolved]
  - Dermal absorption impaired [Not Recovered/Not Resolved]
  - Application site erythema [Recovered/Resolved]
  - Application site irritation [Recovered/Resolved]
  - Application site inflammation [Recovered/Resolved]
